FAERS Safety Report 26135089 (Version 1)
Quarter: 2025Q4

REPORT INFORMATION
  Report Type: Spontaneous
  Country: US (occurrence: US)
  Receive Date: 20251209
  Receipt Date: 20251209
  Transmission Date: 20260118
  Serious: No
  Sender: TEVA
  Company Number: US-TEVA-VS-3395798

PATIENT
  Age: 62 Year
  Sex: Female

DRUGS (2)
  1. LIDOCAINE [Suspect]
     Active Substance: LIDOCAINE
     Indication: Product used for unknown indication
     Route: 062
  2. IBRANCE [Suspect]
     Active Substance: PALBOCICLIB
     Indication: Retroperitoneal cancer
     Dosage: 125 MG DAILY ON DAYS 1 THROUGH 21 OF EACH 28 DAY CYCLE
     Route: 065

REACTIONS (4)
  - Fatigue [Unknown]
  - Diarrhoea [Unknown]
  - Asthenia [Unknown]
  - Dizziness [Unknown]

NARRATIVE: CASE EVENT DATE: 20251115
